FAERS Safety Report 24118501 (Version 1)
Quarter: 2024Q3

REPORT INFORMATION
  Report Type: Spontaneous
  Country: US (occurrence: US)
  Receive Date: 20240722
  Receipt Date: 20240722
  Transmission Date: 20241017
  Serious: No
  Sender: ELI LILLY AND CO
  Company Number: US-ELI_LILLY_AND_COMPANY-US202407008439

PATIENT
  Age: 87 Year
  Sex: Female

DRUGS (1)
  1. TRULICITY [Suspect]
     Active Substance: DULAGLUTIDE
     Indication: Type 2 diabetes mellitus
     Dosage: 0.75 MG, UNKNOWN
     Route: 065
     Dates: start: 2023

REACTIONS (6)
  - Vertigo [Unknown]
  - Oesophageal discomfort [Unknown]
  - Throat tightness [Unknown]
  - Mobility decreased [Unknown]
  - Asthenia [Unknown]
  - Vomiting [Unknown]
